FAERS Safety Report 4805760-3 (Version None)
Quarter: 2005Q4

REPORT INFORMATION
  Report Type: 
  Country: None (occurrence: None)
  Receive Date: 20051021
  Receipt Date: 20050211
  Transmission Date: 20060501
  Serious: Yes (Other)
  Sender: FDA-Public Use
  Company Number: 200510595FR

PATIENT
  Age: 95 Year
  Sex: Female
  Weight: 42 kg

DRUGS (9)
  1. ENOXAPARIN SODIUM [Suspect]
     Indication: INFECTION
     Route: 058
     Dates: start: 20050204, end: 20050210
  2. COVERSYL 4 MG [Concomitant]
     Indication: CARDIAC FAILURE
     Route: 048
  3. IMOVANE [Concomitant]
     Route: 048
  4. CARDENSIEL [Concomitant]
     Indication: CARDIAC FAILURE
     Route: 048
     Dates: end: 20050202
  5. STABLON [Concomitant]
     Route: 048
  6. TRANXENE [Concomitant]
     Route: 048
     Dates: end: 20050201
  7. CLAFORAN [Concomitant]
     Indication: PNEUMONIA
     Route: 042
     Dates: start: 20050207, end: 20050211
  8. AUGMENTIN '125' [Concomitant]
     Indication: PNEUMONIA
     Route: 042
     Dates: start: 20050203, end: 20050206
  9. CLAMOXYL [Concomitant]
     Indication: PNEUMONIA
     Route: 042
     Dates: start: 20050204, end: 20050206

REACTIONS (1)
  - NEUTROPENIA [None]
